FAERS Safety Report 9694961 (Version 1)
Quarter: 2013Q4

REPORT INFORMATION
  Report Type: Spontaneous
  Country: US (occurrence: US)
  Receive Date: 20131119
  Receipt Date: 20131119
  Transmission Date: 20140711
  Serious: Yes (Other)
  Sender: FDA-Public Use
  Company Number: US-TEVA-443936USA

PATIENT
  Age: 84 Year
  Sex: Male
  Weight: 61.74 kg

DRUGS (5)
  1. NUVIGIL [Suspect]
     Indication: SOMNOLENCE
  2. CLONAZEPAM [Suspect]
     Indication: SLEEP DISORDER
     Dosage: 1 MILLIGRAM DAILY;
     Route: 048
  3. ASPIRIN [Concomitant]
     Indication: CARDIAC DISORDER
     Dosage: 325 MILLIGRAM DAILY;
     Route: 048
  4. METOPROLOL [Concomitant]
     Dosage: 25 MILLIGRAM DAILY;
     Route: 048
  5. FISH OIL [Concomitant]

REACTIONS (5)
  - Aortic valve incompetence [Unknown]
  - Aortic valve replacement [Recovered/Resolved]
  - Electrocardiogram abnormal [Unknown]
  - Dizziness [Unknown]
  - Feeling abnormal [Unknown]
